FAERS Safety Report 11064666 (Version 2)
Quarter: 2015Q2

REPORT INFORMATION
  Report Type: Spontaneous
  Country: US (occurrence: US)
  Receive Date: 20150424
  Receipt Date: 20150605
  Transmission Date: 20150821
  Serious: Yes (Other)
  Sender: FDA-Public Use
  Company Number: US-ASTRAZENECA-2015SE37892

PATIENT
  Age: 50 Year
  Sex: Male
  Weight: 64.9 kg

DRUGS (10)
  1. NITRO PILLS [Suspect]
     Active Substance: NITROGLYCERIN
     Route: 065
  2. SYMBICORT [Suspect]
     Active Substance: BUDESONIDE\FORMOTEROL FUMARATE DIHYDRATE
     Indication: EMPHYSEMA
     Dosage: 80/4.5 2 PUFFS; AT NIGHT
     Route: 055
     Dates: start: 2012
  3. SYMBICORT [Suspect]
     Active Substance: BUDESONIDE\FORMOTEROL FUMARATE DIHYDRATE
     Indication: EMPHYSEMA
     Dosage: 80/4.5 2 PUFFS; AT NIGHT
     Route: 055
     Dates: start: 20150403
  4. PROAIR HFA [Concomitant]
     Active Substance: ALBUTEROL SULFATE
     Indication: BRONCHOSPASM
     Dosage: 1-2 PUFFS 1-3 TIMES DAILY AS NEEDED DEPENDING ON THE WEATHER ANS SMOG
     Route: 055
     Dates: start: 2012
  5. SYMBICORT [Suspect]
     Active Substance: BUDESONIDE\FORMOTEROL FUMARATE DIHYDRATE
     Indication: COUGH
     Dosage: 80/4.5 2 PUFFS; AT NIGHT
     Route: 055
     Dates: start: 20150403
  6. PROAIR HFA [Concomitant]
     Active Substance: ALBUTEROL SULFATE
     Indication: DYSPNOEA
     Dosage: 1-2 PUFFS 1-3 TIMES DAILY AS NEEDED DEPENDING ON THE WEATHER ANS SMOG
     Route: 055
     Dates: start: 2012
  7. PROAIR HFA [Concomitant]
     Active Substance: ALBUTEROL SULFATE
     Indication: NASAL CONGESTION
     Dosage: 1-2 PUFFS 1-3 TIMES DAILY AS NEEDED DEPENDING ON THE WEATHER ANS SMOG
     Route: 055
     Dates: start: 2012
  8. SYMBICORT [Suspect]
     Active Substance: BUDESONIDE\FORMOTEROL FUMARATE DIHYDRATE
     Indication: COUGH
     Dosage: 80/4.5 2 PUFFS; AT NIGHT
     Route: 055
     Dates: start: 2012
  9. SYMBICORT [Suspect]
     Active Substance: BUDESONIDE\FORMOTEROL FUMARATE DIHYDRATE
     Indication: CHRONIC OBSTRUCTIVE PULMONARY DISEASE
     Dosage: 80/4.5 2 PUFFS; AT NIGHT
     Route: 055
     Dates: start: 20150403
  10. SYMBICORT [Suspect]
     Active Substance: BUDESONIDE\FORMOTEROL FUMARATE DIHYDRATE
     Indication: CHRONIC OBSTRUCTIVE PULMONARY DISEASE
     Dosage: 80/4.5 2 PUFFS; AT NIGHT
     Route: 055
     Dates: start: 2012

REACTIONS (6)
  - Off label use [Not Recovered/Not Resolved]
  - Blood cholesterol abnormal [Unknown]
  - Intentional product misuse [Unknown]
  - Chest discomfort [Unknown]
  - Blood pressure decreased [Unknown]
  - Circumstance or information capable of leading to medication error [Unknown]

NARRATIVE: CASE EVENT DATE: 2012
